FAERS Safety Report 25875030 (Version 2)
Quarter: 2025Q4

REPORT INFORMATION
  Report Type: Spontaneous
  Country: EU (occurrence: EU)
  Receive Date: 20251003
  Receipt Date: 20251007
  Transmission Date: 20260117
  Serious: Yes (Hospitalization, Other)
  Sender: BAXTER
  Company Number: EU-BAXTER-2025BAX021713

PATIENT
  Age: 40 Year
  Sex: Female

DRUGS (1)
  1. OLIMEL E [Suspect]
     Active Substance: AMINO ACIDS\DEXTROSE\ELECTROLYTES NOS\SOYBEAN OIL
     Indication: Parenteral nutrition
     Dosage: APPROXIMATELY ONE BAG DAILY (VIA CENTRAL VENOUS CATHETER)
     Route: 042
     Dates: start: 20250814, end: 20250823

REACTIONS (4)
  - Endocarditis [Unknown]
  - Systemic candida [Not Recovered/Not Resolved]
  - Candida infection [Not Recovered/Not Resolved]
  - Pyrexia [Unknown]

NARRATIVE: CASE EVENT DATE: 20250818
